FAERS Safety Report 6347038-5 (Version None)
Quarter: 2009Q3

REPORT INFORMATION
  Report Type: 
  Country: None (occurrence: None)
  Receive Date: 20090910
  Receipt Date: 20090901
  Transmission Date: 20100115
  Serious: Yes (Other)
  Sender: FDA-Public Use
  Company Number: US-WYE-H10803309

PATIENT
  Age: 21 Year
  Sex: Male

DRUGS (3)
  1. EFFEXOR XR [Suspect]
     Dosage: UNKNOWN
     Route: 048
     Dates: start: 20090101, end: 20090816
  2. EFFEXOR XR [Suspect]
     Dosage: 75 MG (FREQUENCY UNSPECIFIED)
     Route: 048
     Dates: start: 20090817
  3. ADDERALL 10 [Concomitant]
     Dosage: UNKNOWN

REACTIONS (2)
  - AGGRESSION [None]
  - HOMICIDAL IDEATION [None]
